FAERS Safety Report 26196989 (Version 1)
Quarter: 2025Q4

REPORT INFORMATION
  Report Type: Report from Study
  Country: CN (occurrence: CN)
  Receive Date: 20251224
  Receipt Date: 20251224
  Transmission Date: 20260117
  Serious: Yes (Hospitalization)
  Sender: ALEXION PHARMACEUTICALS
  Company Number: CN-ASTRAZENECA-202511GLO029314CN

PATIENT
  Age: 62 Year
  Sex: Male
  Weight: 65 kg

DRUGS (8)
  1. OSIMERTINIB [Suspect]
     Active Substance: OSIMERTINIB
     Indication: Lung adenocarcinoma
     Dosage: 80 MILLIGRAM, QD
     Route: 061
     Dates: start: 20250925, end: 20251126
  2. OSIMERTINIB [Suspect]
     Active Substance: OSIMERTINIB
     Dosage: 80 MILLIGRAM, QD
     Route: 061
     Dates: start: 20251127, end: 20251127
  3. BECOTATUG [Suspect]
     Active Substance: BECOTATUG
     Indication: Lung adenocarcinoma
     Dosage: 6 MILLIGRAM/KILOGRAM, Q2W
     Dates: start: 20250925, end: 20251023
  4. BECOTATUG [Suspect]
     Active Substance: BECOTATUG
     Dosage: 4.8 MILLIGRAM/KILOGRAM, Q2W
     Dates: start: 20251106, end: 20251119
  5. OXYCODONE HYDROCHLORIDE [Concomitant]
     Active Substance: OXYCODONE HYDROCHLORIDE
     Indication: Cancer pain
     Dosage: 15 MILLIGRAM, Q12H
     Route: 061
     Dates: start: 20250828, end: 20250929
  6. DOXOFYLLINE [Concomitant]
     Active Substance: DOXOFYLLINE
     Indication: Cough
     Dosage: 0.2 GRAM, QD
     Route: 061
     Dates: start: 20250828, end: 20250929
  7. DOXOFYLLINE [Concomitant]
     Active Substance: DOXOFYLLINE
     Indication: Productive cough
     Dosage: 0.3 GRAM, QD
     Dates: start: 20250828, end: 20250906
  8. AMBROXOL HYDROCHLORIDE [Concomitant]
     Active Substance: AMBROXOL HYDROCHLORIDE
     Indication: Productive cough
     Dosage: 30 MILLIGRAM, TID
     Route: 061
     Dates: start: 20250912, end: 20250929

REACTIONS (3)
  - Dermatitis allergic [Recovering/Resolving]
  - Application site rash [Recovering/Resolving]
  - Dry skin [Recovering/Resolving]

NARRATIVE: CASE EVENT DATE: 20251125
